FAERS Safety Report 12636955 (Version 2)
Quarter: 2016Q3

REPORT INFORMATION
  Report Type: Spontaneous
  Country: US (occurrence: US)
  Receive Date: 20160809
  Receipt Date: 20160929
  Transmission Date: 20161109
  Serious: No
  Sender: FDA-Public Use
  Company Number: US-009507513-1607USA008136

PATIENT
  Sex: Female

DRUGS (8)
  1. BACLOFEN. [Concomitant]
     Active Substance: BACLOFEN
     Dosage: STRENGTH: 10 (UNITS NOT PROVIDED),1 DF, BID
     Route: 048
  2. DIAZEPAM. [Concomitant]
     Active Substance: DIAZEPAM
     Dosage: STRENGTH: 2 (UNITS NOT PROVIDED),1 DF, BID, PM
     Route: 048
  3. HYDROCODONE [Concomitant]
     Active Substance: HYDROCODONE
     Dosage: STRENGTH:10/325 (UNITS NOT PROVIDED),UNK, QID, PM
     Route: 048
  4. PREMARIN [Concomitant]
     Active Substance: ESTROGENS, CONJUGATED
     Dosage: STRENGTH: 1.25 (UNITS NOT PROVIDED), 2 DF, QD
     Route: 048
  5. LYRICA [Concomitant]
     Active Substance: PREGABALIN
     Dosage: STRENGTH: 150 (UNITS NOT PROVIDED),1 DF, BID
     Route: 048
  6. NAPROXEN. [Concomitant]
     Active Substance: NAPROXEN
     Dosage: STRENGTH: 500 (UNITS NOT PROVIDED),1 DF, BID
     Route: 048
  7. OMEPRAZOLE. [Concomitant]
     Active Substance: OMEPRAZOLE
     Dosage: STRENGTH: 40 (UNITS NOT PROVIDED), 1 DF, QD
     Route: 048
  8. BELSOMRA [Suspect]
     Active Substance: SUVOREXANT
     Dosage: UNK
     Route: 048

REACTIONS (1)
  - Alcohol test false positive [Unknown]
